FAERS Safety Report 8620831-1 (Version None)
Quarter: 2012Q3

REPORT INFORMATION
  Report Type: 
  Country: None (occurrence: None)
  Receive Date: 20120824
  Receipt Date: 20120814
  Transmission Date: 20120928
  Serious: Yes (Other)
  Sender: FDA-Public Use
  Company Number: FR-ROCHE-1101701

PATIENT
  Sex: Female

DRUGS (2)
  1. AVASTIN [Suspect]
     Indication: BREAST CANCER
  2. TAXOL [Concomitant]
     Indication: BREAST CANCER

REACTIONS (2)
  - URINARY BLADDER RUPTURE [None]
  - FISTULA [None]
